FAERS Safety Report 7742501-4 (Version None)
Quarter: 2011Q3

REPORT INFORMATION
  Report Type: 
  Country: None (occurrence: None)
  Receive Date: 20110912
  Receipt Date: 20110831
  Transmission Date: 20111222
  Serious: Yes (Death, Hospitalization, Disabling)
  Sender: FDA-Public Use
  Company Number: US-CELGENEUS-163-21880-11033260

PATIENT
  Sex: Male
  Weight: 56.16 kg

DRUGS (50)
  1. IPRATROPIUM BROMIDE [Concomitant]
     Dosage: 0.5MG
     Route: 055
  2. SINGULAIR [Concomitant]
     Dosage: 1
     Route: 048
  3. MORPHINE SULFATE [Concomitant]
     Dosage: 15 MILLIGRAM
     Route: 048
  4. NYSTATIN [Concomitant]
     Dosage: 100000 UNITS
     Route: 048
  5. RESTORIL [Concomitant]
     Dosage: 15 MILLIGRAM
     Route: 048
  6. ATIVAN [Concomitant]
     Dosage: 1 MILLIGRAM
     Route: 041
  7. ATIVAN [Concomitant]
     Dosage: 1 MILLIGRAM
     Route: 048
  8. MAGNESIUM SULFATE [Concomitant]
     Dosage: 1-4G
     Route: 041
  9. VALTREX [Concomitant]
     Dosage: 500 MILLIGRAM
     Route: 048
  10. GABAPENTIN [Concomitant]
     Dosage: 200 MILLIGRAM
     Route: 048
  11. RED BLOOD CELLS [Concomitant]
     Dosage: 2 UNITS
     Route: 048
     Dates: start: 20110402, end: 20110402
  12. VANCOMYCIN [Concomitant]
     Dosage: 125 MILLIGRAM
     Route: 048
  13. ACIDOPHILUS [Concomitant]
     Dosage: 1
     Route: 048
  14. MOM [Concomitant]
     Dosage: 30ML
     Route: 048
  15. AZITHROMYCIN [Concomitant]
     Route: 065
  16. POTASSIUM CHLORIDE [Concomitant]
     Dosage: 20 MILLIEQUIVALENTS
     Route: 048
  17. DOCUSATE [Concomitant]
     Dosage: 100 MILLIGRAM
     Route: 048
  18. MIRTAZAPINE [Concomitant]
     Dosage: 1
     Route: 048
  19. MOXIFLOXACIN [Concomitant]
     Dosage: 400 MILLIGRAM
     Route: 048
  20. MULTI-VITAMINS [Concomitant]
     Dosage: 1
     Route: 048
  21. REVLIMID [Suspect]
     Dosage: 25 MILLIGRAM
     Route: 048
     Dates: start: 20110201, end: 20110302
  22. ALLOPURINOL [Concomitant]
     Dosage: 200 MILLIGRAM
     Route: 048
  23. FLUTICASONE PROPIONATE [Concomitant]
     Route: 055
  24. PREDNISONE [Concomitant]
     Dosage: 10 MILLIGRAM
     Route: 048
  25. COMPAZINE [Concomitant]
     Dosage: 10 MILLIGRAM
     Route: 048
  26. AMBIEN [Concomitant]
     Dosage: 5-10MG
     Route: 048
  27. BACTRIM DS [Concomitant]
     Dosage: 800-160MG
     Route: 048
  28. DEXAMETHASONE [Concomitant]
     Dosage: 4 MILLIGRAM
     Route: 048
  29. LASIX [Concomitant]
     Dosage: 20 MILLIGRAM
     Route: 048
  30. SINGULAIR [Concomitant]
     Indication: SEASONAL ALLERGY
     Dosage: 2 MILLIGRAM
     Route: 048
  31. MYCOSTATIN [Concomitant]
     Dosage: 100,000 UNITS
     Route: 048
  32. OXYCODONE HCL [Concomitant]
     Dosage: 5-10MG
     Route: 048
  33. VORICONAZOLE [Concomitant]
     Dosage: 1
     Route: 048
  34. IPRATROPIUM BROMIDE [Concomitant]
     Dosage: 18-103MCG
     Route: 065
  35. ALLOPURINOL [Concomitant]
     Dosage: 100 MILLIGRAM
     Route: 048
  36. DIAZEPAM [Concomitant]
     Dosage: 2 MILLIGRAM
     Route: 048
  37. SPIRIVA [Concomitant]
     Route: 065
  38. MYCOSTATIN [Concomitant]
     Dosage: 100000 UNIT/GM
     Route: 065
  39. PREDNISONE [Concomitant]
     Dosage: 60 MILLIGRAM
     Route: 048
  40. CIPROFLOXACIN [Concomitant]
     Route: 065
  41. SENNA [Concomitant]
     Indication: CONSTIPATION
     Dosage: 1-2
     Route: 048
  42. HEPARIN [Concomitant]
     Dosage: 3ML 10 UNITS/ML
     Route: 065
  43. REVLIMID [Suspect]
     Indication: MULTIPLE MYELOMA
     Dosage: 10 MILLIGRAM
     Route: 048
     Dates: start: 20090901
  44. ALBUTEROL SULFATE AUTOHALER [Concomitant]
     Dosage: 2 PUFFS
     Route: 048
  45. FLOVENT [Concomitant]
     Dosage: 2 PUFFS
     Route: 055
  46. ASPIRIN [Concomitant]
     Dosage: 1
     Route: 048
  47. SODIUM CHLORIDE [Concomitant]
     Dosage: 10 MILLILITER
     Route: 065
  48. POTASSIUM CHLORIDE [Concomitant]
     Dosage: 20MEQ 50ML BAG
     Route: 041
  49. CEPACOL [Concomitant]
     Dosage: 1
     Route: 048
  50. NICOTINE [Concomitant]
     Dosage: 1
     Route: 062

REACTIONS (7)
  - MULTIPLE MYELOMA [None]
  - LUNG ABSCESS [None]
  - ORGANISING PNEUMONIA [None]
  - CHRONIC OBSTRUCTIVE PULMONARY DISEASE [None]
  - NEUTROPENIA [None]
  - THROMBOCYTOPENIA [None]
  - LOBAR PNEUMONIA [None]
